FAERS Safety Report 6878753-2 (Version None)
Quarter: 2010Q3

REPORT INFORMATION
  Report Type: 
  Country: None (occurrence: None)
  Receive Date: 20100728
  Receipt Date: 20100719
  Transmission Date: 20110219
  Serious: Yes (Disabling)
  Sender: FDA-Public Use
  Company Number: GB-ABBOTT-10P-167-0658870-00

PATIENT
  Age: 55 Year
  Sex: Female
  Weight: 60 kg

DRUGS (2)
  1. ERYTHROMYCIN [Suspect]
     Indication: INFECTED CYST
     Route: 048
     Dates: start: 20100315, end: 20100329
  2. SANDRENA [Concomitant]
     Indication: MENOPAUSAL SYMPTOMS
     Route: 062
     Dates: start: 20081202

REACTIONS (2)
  - ERYTHEMA [None]
  - SWELLING FACE [None]
